FAERS Safety Report 9354392 (Version 1)
Quarter: 2013Q2

REPORT INFORMATION
  Report Type: Spontaneous
  Country: JP (occurrence: JP)
  Receive Date: 20130618
  Receipt Date: 20130618
  Transmission Date: 20140414
  Serious: Yes (Hospitalization)
  Sender: FDA-Public Use
  Company Number: JP-009507513-1306JPN006920

PATIENT
  Age: 71 Year
  Sex: Female

DRUGS (1)
  1. BONALON [Suspect]
     Indication: OSTEOPOROSIS
     Dosage: 35 MG, UNK, TAKEN IN DECEMBER YEAR UNKNOWN
     Route: 048

REACTIONS (1)
  - Femur fracture [Recovering/Resolving]
